FAERS Safety Report 21645042 (Version 1)
Quarter: 2022Q4

REPORT INFORMATION
  Report Type: Spontaneous
  Country: TW (occurrence: TW)
  Receive Date: 20221125
  Receipt Date: 20221125
  Transmission Date: 20230113
  Serious: Yes (Hospitalization)
  Sender: FDA-Public Use
  Company Number: TW-ABBVIE-4213144

PATIENT
  Age: 72 Year
  Sex: Female

DRUGS (4)
  1. VENETOCLAX [Suspect]
     Active Substance: VENETOCLAX
     Indication: Acute myeloid leukaemia
     Route: 048
     Dates: start: 20220210, end: 20220309
  2. VENETOCLAX [Suspect]
     Active Substance: VENETOCLAX
     Indication: Acute myeloid leukaemia
     Route: 048
     Dates: start: 20211122, end: 20211219
  3. AZACITIDINE [Concomitant]
     Active Substance: AZACITIDINE
     Indication: Acute myeloid leukaemia
     Route: 048
     Dates: start: 20211122, end: 20211128
  4. AZACITIDINE [Concomitant]
     Active Substance: AZACITIDINE
     Indication: Acute myeloid leukaemia
     Dates: start: 20220210, end: 20220216

REACTIONS (9)
  - Pancytopenia [Unknown]
  - Stomatitis [Unknown]
  - Candida infection [Unknown]
  - Neutropenia [Unknown]
  - Acute kidney injury [Recovering/Resolving]
  - Febrile neutropenia [Unknown]
  - Urinary tract infection [Unknown]
  - Pyrexia [Unknown]
  - Stenotrophomonas infection [Unknown]

NARRATIVE: CASE EVENT DATE: 20211202
